FAERS Safety Report 15034752 (Version 4)
Quarter: 2019Q1

REPORT INFORMATION
  Report Type: Spontaneous
  Country: US (occurrence: US)
  Receive Date: 20180620
  Receipt Date: 20190212
  Transmission Date: 20190417
  Serious: Yes (Life-Threatening, Hospitalization, Other)
  Sender: FDA-Public Use
  Company Number: US-ACCORD-068486

PATIENT
  Age: 28 Year
  Sex: Male

DRUGS (1)
  1. CLOZAPINE. [Suspect]
     Active Substance: CLOZAPINE
     Indication: SCHIZOPHRENIA
     Dosage: 50 MG,75 MG, 100 MG,IN THE EVENING
     Dates: start: 20100121, end: 20100123

REACTIONS (3)
  - Brugada syndrome [Unknown]
  - Electrocardiogram ST segment elevation [Recovered/Resolved]
  - Myocarditis [Recovering/Resolving]

NARRATIVE: CASE EVENT DATE: 20100121
